FAERS Safety Report 16642167 (Version 1)
Quarter: 2019Q3

REPORT INFORMATION
  Report Type: Spontaneous
  Country: JP (occurrence: JP)
  Receive Date: 20190729
  Receipt Date: 20190729
  Transmission Date: 20191004
  Serious: Yes (Death, Hospitalization)
  Sender: FDA-Public Use
  Company Number: JP-ROCHE-2363225

PATIENT
  Age: 78 Year
  Sex: Male

DRUGS (1)
  1. TECENTRIQ [Suspect]
     Active Substance: ATEZOLIZUMAB
     Indication: LARGE CELL LUNG CANCER
     Dosage: MOST RECENT DOSE ON 29/MAY/2019.
     Route: 041
     Dates: start: 20190529

REACTIONS (2)
  - Haemoptysis [Not Recovered/Not Resolved]
  - Large cell lung cancer [Fatal]

NARRATIVE: CASE EVENT DATE: 201906
